FAERS Safety Report 16354126 (Version 2)
Quarter: 2019Q2

REPORT INFORMATION
  Report Type: Spontaneous
  Country: US (occurrence: US)
  Receive Date: 20190524
  Receipt Date: 20190624
  Transmission Date: 20190711
  Serious: No
  Sender: FDA-Public Use
  Company Number: US-PFIZER INC-2019008272

PATIENT
  Age: 12 Year
  Sex: Male
  Weight: 57.15 kg

DRUGS (10)
  1. GENOTROPIN [Suspect]
     Active Substance: SOMATROPIN
     Dosage: 1.6 MG, UNK
  2. PROAIR [FLUTICASONE PROPIONATE] [Concomitant]
     Active Substance: FLUTICASONE PROPIONATE
     Dosage: UNK
     Dates: start: 2017
  3. GENOTROPIN [Suspect]
     Active Substance: SOMATROPIN
     Indication: GROWTH HORMONE DEFICIENCY
     Dosage: 1.4 MG, UNK
  4. GENOTROPIN [Suspect]
     Active Substance: SOMATROPIN
     Dosage: 1.3 MG, UNK (FOR 6 DAYS WEEK OFF ON SUNDAYS)
     Dates: start: 20180204
  5. GENOTROPIN [Suspect]
     Active Substance: SOMATROPIN
     Dosage: 2 MG, DAILY [MON  THRU SAT]
     Route: 058
     Dates: start: 20180210
  6. PROAIR [FLUTICASONE PROPIONATE] [Concomitant]
     Active Substance: FLUTICASONE PROPIONATE
     Dosage: UNK, AS NEEDED(INHALER WHEN NEEDED)
     Dates: start: 2016
  7. GENOTROPIN [Suspect]
     Active Substance: SOMATROPIN
     Indication: BLOOD GROWTH HORMONE ABNORMAL
     Dosage: 2 MG, 1X/DAY(AT NIGHT, MONDAY THROUGH SATURDAY AND ALSO THE SUNDAY)
     Dates: start: 201802
  8. GENOTROPIN [Suspect]
     Active Substance: SOMATROPIN
     Dosage: 2 MG, UNK [FOR 6 DAYS WEEK EXCEPT SUNDAY]
  9. QVAR [Concomitant]
     Active Substance: BECLOMETHASONE DIPROPIONATE
     Indication: ASTHMA
     Dosage: INHALER, 2 PUFFS IN MORNING AND 2 PUFFS AT NIGHT
  10. QVAR [Concomitant]
     Active Substance: BECLOMETHASONE DIPROPIONATE
     Dosage: UNK
     Dates: start: 2017

REACTIONS (5)
  - Device issue [Unknown]
  - Product prescribing error [Unknown]
  - Product dose omission [Unknown]
  - Poor quality device used [Unknown]
  - Weight increased [Unknown]
